FAERS Safety Report 6623434-3 (Version None)
Quarter: 2010Q1

REPORT INFORMATION
  Report Type: 
  Country: None (occurrence: None)
  Receive Date: 20100304
  Receipt Date: 20100223
  Transmission Date: 20100710
  Serious: Yes (Other)
  Sender: FDA-Public Use
  Company Number: 2010JP001165

PATIENT
  Age: 42 Year
  Sex: Female

DRUGS (5)
  1. PROGRAF [Suspect]
     Indication: CORD BLOOD TRANSPLANT THERAPY
  2. CYCLOPHOSPHAMIDE [Concomitant]
  3. CYCLOSPORINE [Concomitant]
  4. FOSCARNET (FOSCARNET) FORMULATION UNKNOWN [Concomitant]
  5. VORICONAZOLE (VORICONAZOLE) FORMULATION UNKNOWN [Concomitant]

REACTIONS (7)
  - ASCITES [None]
  - CHOLECYSTITIS [None]
  - DRUG LEVEL INCREASED [None]
  - HEPATIC FUNCTION ABNORMAL [None]
  - PLEURAL EFFUSION [None]
  - RENAL IMPAIRMENT [None]
  - THROMBOTIC MICROANGIOPATHY [None]
